FAERS Safety Report 19015373 (Version 1)
Quarter: 2021Q1

REPORT INFORMATION
  Report Type: Spontaneous
  Country: GB (occurrence: GB)
  Receive Date: 20210316
  Receipt Date: 20210316
  Transmission Date: 20210420
  Serious: Yes (Hospitalization, Other)
  Sender: FDA-Public Use
  Company Number: GB-SA-2018SA125420

PATIENT
  Age: 44 Year
  Sex: Female

DRUGS (71)
  1. PERTUZUMAB. [Suspect]
     Active Substance: PERTUZUMAB
     Indication: BREAST CANCER METASTATIC
     Dosage: 840 MG, QCY (PLANNED NUMBER OF CYCLES COMPLETED)
     Route: 042
     Dates: start: 20161020, end: 20161020
  2. FILGRASTIM [Concomitant]
     Active Substance: FILGRASTIM
     Indication: PRODUCT USED FOR UNKNOWN INDICATION
     Dosage: 480 UG
     Route: 058
     Dates: start: 20161118, end: 20161121
  3. DEXAMETHASONE. [Concomitant]
     Active Substance: DEXAMETHASONE
     Dosage: 1 MG, QD
     Route: 048
     Dates: start: 20170831, end: 20180308
  4. DEXAMETHASONE. [Concomitant]
     Active Substance: DEXAMETHASONE
     Dosage: 12 MG, QD
     Route: 048
     Dates: start: 20181214, end: 20190124
  5. CO?AMOXICLAVE [Concomitant]
     Active Substance: AMOXICILLIN\CLAVULANATE POTASSIUM
     Dosage: 1500 MG
     Route: 048
     Dates: start: 20161207
  6. OXYCODONE [Concomitant]
     Active Substance: OXYCODONE
     Dosage: 40 UNK
     Route: 048
     Dates: start: 20171101, end: 20171130
  7. CO?AMOXICLAV [AMOXICILLIN;CLAVULANATE POTASSIUM] [Concomitant]
     Active Substance: AMOXICILLIN\CLAVULANATE POTASSIUM
     Dosage: 1500 MG, QD
     Route: 048
     Dates: start: 20170125, end: 20170130
  8. CASSIA SENNA [Concomitant]
     Active Substance: HERBALS\SENNOSIDES
     Indication: PRODUCT USED FOR UNKNOWN INDICATION
     Dosage: 15 MG, QD
     Route: 048
     Dates: start: 20170922, end: 20180404
  9. DOCETAXEL. [Suspect]
     Active Substance: DOCETAXEL
     Indication: BREAST CANCER METASTATIC
     Dosage: 120 MG, Q3W
     Route: 042
     Dates: start: 20160321, end: 20160321
  10. DEXAMETHASONE. [Concomitant]
     Active Substance: DEXAMETHASONE
     Dosage: 2 MG, QD
     Route: 048
     Dates: start: 20170308, end: 20170813
  11. DEXAMETHASONE. [Concomitant]
     Active Substance: DEXAMETHASONE
     Dosage: 16 MG, QD (8 MG BID)
     Route: 048
     Dates: start: 20181206, end: 20181207
  12. CHLORPHENAMINE [Concomitant]
     Active Substance: CHLORPHENIRAMINE MALEATE
     Indication: PRODUCT USED FOR UNKNOWN INDICATION
     Dosage: 10 MG
     Route: 042
     Dates: start: 20161117, end: 20161117
  13. METOCLOPRAMIDE. [Concomitant]
     Active Substance: METOCLOPRAMIDE
     Indication: NAUSEA
     Dosage: UNK
     Route: 042
     Dates: start: 20161117, end: 20161117
  14. CANESTEN [Concomitant]
     Active Substance: CLOTRIMAZOLE
     Indication: PRODUCT USED FOR UNKNOWN INDICATION
     Dosage: UNK
     Route: 065
     Dates: start: 20180419, end: 20180419
  15. CO?AMOXICLAV [AMOXICILLIN;CLAVULANATE POTASSIUM] [Concomitant]
     Active Substance: AMOXICILLIN\CLAVULANATE POTASSIUM
     Dosage: 1500 MG, QD
     Route: 048
     Dates: start: 20161207
  16. GABAPENTIN. [Concomitant]
     Active Substance: GABAPENTIN
     Dosage: 900 MG, QD
     Route: 048
  17. MACROGOL [Concomitant]
     Active Substance: POLYETHYLENE GLYCOLS
     Indication: CONSTIPATION
     Dosage: UNK UNK, QD
     Route: 048
     Dates: start: 20170922, end: 20190326
  18. HYDROCORTISONE. [Concomitant]
     Active Substance: HYDROCORTISONE
     Dosage: 50 MG
     Route: 042
     Dates: start: 20170122, end: 20170122
  19. DEXAMETHASONE. [Concomitant]
     Active Substance: DEXAMETHASONE
     Dosage: 8 MG, QD
     Route: 048
     Dates: start: 20181208, end: 20181213
  20. DEXAMETHASONE. [Concomitant]
     Active Substance: DEXAMETHASONE
     Dosage: 0.5 MG, QD
     Route: 048
     Dates: start: 20180308, end: 20180419
  21. DEXAMETHASONE. [Concomitant]
     Active Substance: DEXAMETHASONE
     Dosage: 14 MG, QD
     Route: 048
     Dates: start: 20190124, end: 20190326
  22. AMOXICILLIN. [Concomitant]
     Active Substance: AMOXICILLIN
     Indication: RHINITIS
     Dosage: 500 MG
     Route: 048
     Dates: start: 20181205, end: 20181205
  23. BISACODYL. [Concomitant]
     Active Substance: BISACODYL
     Dosage: UNK
     Route: 048
     Dates: start: 20171009, end: 20190326
  24. FUROSEMIDE. [Concomitant]
     Active Substance: FUROSEMIDE
     Indication: OEDEMA PERIPHERAL
     Dosage: 20 MG
     Route: 048
     Dates: start: 20170501, end: 20190326
  25. FUROSEMIDE. [Concomitant]
     Active Substance: FUROSEMIDE
     Dosage: 40 MG
     Route: 048
     Dates: start: 20170308, end: 20190326
  26. DALTEPARIN [Concomitant]
     Active Substance: DALTEPARIN
     Indication: DEEP VEIN THROMBOSIS
     Dosage: 18 IU
     Route: 058
     Dates: start: 20170418, end: 20180510
  27. OXYCONTIN [Concomitant]
     Active Substance: OXYCODONE HYDROCHLORIDE
     Indication: PAIN
     Dosage: UNK UNK, BID
     Dates: start: 20171116, end: 20180621
  28. RAMIPRIL. [Concomitant]
     Active Substance: RAMIPRIL
     Indication: PRODUCT USED FOR UNKNOWN INDICATION
     Dosage: 1.25 MG
     Dates: start: 20170608, end: 20190326
  29. PARACETAMOL;PHENYLTOLOXAMINE CITRATE [Concomitant]
     Dosage: UNK
     Dates: start: 20170122
  30. PERTUZUMAB. [Suspect]
     Active Substance: PERTUZUMAB
     Dosage: 420 MG,Q3W
     Route: 042
     Dates: start: 20171122, end: 20171122
  31. FLUCONAZOLE. [Concomitant]
     Active Substance: FLUCONAZOLE
     Indication: ORAL CANDIDIASIS
     Dosage: 50 MG, QD
     Route: 048
     Dates: start: 20161207, end: 20161214
  32. DEXAMETHASONE. [Concomitant]
     Active Substance: DEXAMETHASONE
     Indication: METASTASES TO CENTRAL NERVOUS SYSTEM
     Dosage: 8 MG, QD
     Route: 048
     Dates: start: 20161116, end: 20161119
  33. DEXAMETHASONE. [Concomitant]
     Active Substance: DEXAMETHASONE
     Indication: VISUAL IMPAIRMENT
     Dosage: 4 MG, QD
     Route: 048
     Dates: start: 20170126, end: 20170308
  34. MORPHINE SULFATE. [Concomitant]
     Active Substance: MORPHINE SULFATE
     Indication: PRODUCT USED FOR UNKNOWN INDICATION
     Dosage: 10 MG
     Dates: start: 20170922, end: 20190326
  35. ORAMORPH SR SUSTAINED RELEASE [Concomitant]
     Active Substance: MORPHINE SULFATE
     Indication: PAIN
     Dosage: 5 MG
     Route: 048
     Dates: start: 20180830, end: 20190326
  36. BUPRENORPHINE. [Concomitant]
     Active Substance: BUPRENORPHINE
     Indication: PAIN
     Dosage: UNK
     Route: 062
     Dates: start: 20181023, end: 20181212
  37. NAPROXEN. [Concomitant]
     Active Substance: NAPROXEN
     Indication: PRODUCT USED FOR UNKNOWN INDICATION
     Dosage: 500 MG, QD
     Route: 048
     Dates: start: 20170922, end: 20190326
  38. LAXIDO [Concomitant]
     Active Substance: POLYETHYLENE GLYCOL 3350\POTASSIUM CHLORIDE\SODIUM BICARBONATE\SODIUM CHLORIDE
     Indication: CONSTIPATION
     Dosage: UNK
     Route: 048
     Dates: start: 20191009
  39. TRASTUZUMAB. [Suspect]
     Active Substance: TRASTUZUMAB
     Dosage: 300 MG
     Route: 042
     Dates: start: 20181214
  40. DEXAMETHASONE. [Concomitant]
     Active Substance: DEXAMETHASONE
     Indication: SEIZURE
     Dosage: 6 MG, QD
     Route: 048
     Dates: start: 20170125
  41. DEXAMETHASONE. [Concomitant]
     Active Substance: DEXAMETHASONE
     Dosage: 0.25 UG, QD
     Route: 048
     Dates: start: 20180621, end: 20190326
  42. CO?AMOXICLAVE [Concomitant]
     Active Substance: AMOXICILLIN\CLAVULANATE POTASSIUM
     Indication: LOWER RESPIRATORY TRACT INFECTION
     Dosage: 1.2 UNK, QD
     Route: 042
     Dates: start: 20170122, end: 20170124
  43. OXYCODONE [Concomitant]
     Active Substance: OXYCODONE
     Indication: BACK PAIN
     Dosage: 180 MG, QD
     Route: 048
     Dates: start: 20171130, end: 20190326
  44. DICLOFENAC [Concomitant]
     Active Substance: DICLOFENAC
     Indication: PRODUCT USED FOR UNKNOWN INDICATION
     Dosage: 1 DROP
     Route: 061
     Dates: start: 20181023, end: 20190326
  45. FLUCLOXACILLIN [Concomitant]
     Active Substance: FLUCLOXACILLIN
     Indication: PRODUCT USED FOR UNKNOWN INDICATION
     Dosage: 2000 MG, QD (500 MG,0.25 DAY)
     Route: 048
     Dates: start: 20170406, end: 20170413
  46. ONDANSETRON [Concomitant]
     Active Substance: ONDANSETRON
     Indication: NAUSEA
     Dosage: 4 MG
     Route: 048
     Dates: start: 20170510, end: 20190326
  47. BUPRENORPHINE. [Concomitant]
     Active Substance: BUPRENORPHINE
     Dosage: 10 UG, QW
     Route: 062
     Dates: start: 20181212, end: 20190326
  48. DOCETAXEL. [Suspect]
     Active Substance: DOCETAXEL
     Dosage: 120 MG, Q3W (LAST DOSE RECEIVED ON 21/MAR/2016 CYCLES)
     Route: 042
     Dates: start: 20161117, end: 20161117
  49. TRASTUZUMAB. [Suspect]
     Active Substance: TRASTUZUMAB
     Dosage: 600 MG,Q3W
     Route: 042
     Dates: start: 20161117, end: 20161117
  50. CO?AMOXICLAVE [Concomitant]
     Active Substance: AMOXICILLIN\CLAVULANATE POTASSIUM
     Dosage: 500 MG, QD
     Route: 048
     Dates: start: 20170125, end: 20170130
  51. CO?AMOXICLAVE [Concomitant]
     Active Substance: AMOXICILLIN\CLAVULANATE POTASSIUM
     Dosage: 500 MG, QD
     Route: 048
     Dates: start: 20161207
  52. LEVETIRACETAM. [Concomitant]
     Active Substance: LEVETIRACETAM
     Indication: SEIZURE
     Dosage: 500 MG, QD (250 MG BID)
     Dates: start: 20181213, end: 20190103
  53. LACTULOSE. [Concomitant]
     Active Substance: LACTULOSE
     Indication: CONSTIPATION
     Dosage: 10 MG
     Route: 048
     Dates: start: 20180830, end: 20190326
  54. TINZAPARIN [Concomitant]
     Active Substance: TINZAPARIN
     Indication: PRODUCT USED FOR UNKNOWN INDICATION
     Dosage: 4500 UNIT
     Route: 058
     Dates: start: 20181205, end: 20181212
  55. TRASTUZUMAB. [Suspect]
     Active Substance: TRASTUZUMAB
     Indication: BREAST CANCER METASTATIC
     Dosage: 798 MG,QCY (PLANNED NUMBER OF CYCLES COMPLETED)
     Route: 042
     Dates: start: 20161020, end: 20161020
  56. HYDROCORTISONE. [Concomitant]
     Active Substance: HYDROCORTISONE
     Indication: PRODUCT USED FOR UNKNOWN INDICATION
     Dosage: 100 MG
     Route: 042
     Dates: start: 20161117, end: 20161117
  57. DEXAMETHASONE. [Concomitant]
     Active Substance: DEXAMETHASONE
     Dosage: 6 MG,QD
     Route: 048
     Dates: start: 20181205, end: 20181205
  58. METOCLOPRAMIDE. [Concomitant]
     Active Substance: METOCLOPRAMIDE
     Dosage: 10 MG
     Route: 048
     Dates: start: 20170510, end: 20190326
  59. OXYCODONE [Concomitant]
     Active Substance: OXYCODONE
     Dosage: 40 UNK
     Route: 048
     Dates: start: 20171012, end: 20171101
  60. IBUPROFEN. [Concomitant]
     Active Substance: IBUPROFEN
     Dosage: 200 MG, 0.33 DAY
     Route: 048
     Dates: start: 20180308, end: 20180621
  61. LEVETIRACETAM. [Concomitant]
     Active Substance: LEVETIRACETAM
     Dosage: 1000 MG, QD (500 MG BID)
     Route: 048
     Dates: start: 20190103, end: 20190326
  62. CO?AMOXICLAV [AMOXICILLIN;CLAVULANATE POTASSIUM] [Concomitant]
     Active Substance: AMOXICILLIN\CLAVULANATE POTASSIUM
     Indication: LOWER RESPIRATORY TRACT INFECTION
     Dosage: 3.6 G, QD
     Route: 042
     Dates: start: 20170122, end: 20170124
  63. CO?AMOXICLAV [AMOXICILLIN;CLAVULANATE POTASSIUM] [Concomitant]
     Active Substance: AMOXICILLIN\CLAVULANATE POTASSIUM
     Dosage: 500 MG, QD
     Route: 048
     Dates: start: 20200125, end: 20200130
  64. PERTUZUMAB. [Suspect]
     Active Substance: PERTUZUMAB
     Dosage: 420 MG,Q3W
     Route: 042
     Dates: start: 20161117, end: 20161117
  65. LANSOPRAZOLE. [Concomitant]
     Active Substance: LANSOPRAZOLE
     Indication: PRODUCT USED FOR UNKNOWN INDICATION
     Dosage: 30 MG,QD
     Route: 048
  66. DEXAMETHASONE. [Concomitant]
     Active Substance: DEXAMETHASONE
     Dosage: 0.25 UG, QD
     Route: 048
     Dates: start: 20180419, end: 20180510
  67. OXYCODONE [Concomitant]
     Active Substance: OXYCODONE
     Dosage: UNK
  68. CO?AMOXICLAV [AMOXICILLIN;CLAVULANATE POTASSIUM] [Concomitant]
     Active Substance: AMOXICILLIN\CLAVULANATE POTASSIUM
     Dosage: 500 MG, QD
     Route: 048
     Dates: start: 20161207
  69. GABAPENTIN. [Concomitant]
     Active Substance: GABAPENTIN
     Dosage: 300 MG (0.33 DAY)
     Route: 048
     Dates: start: 20171116, end: 20180621
  70. MOVICOL [Concomitant]
     Active Substance: POLYETHYLENE GLYCOL 3350\POTASSIUM CHLORIDE\SODIUM BICARBONATE\SODIUM CHLORIDE
     Indication: CONSTIPATION
     Dosage: UNK
     Route: 048
     Dates: start: 20190326
  71. CANDESARTAN. [Concomitant]
     Active Substance: CANDESARTAN
     Indication: CANDIDA INFECTION
     Dosage: 100 MG
     Route: 067
     Dates: start: 20180419, end: 20180419

REACTIONS (8)
  - Deep vein thrombosis [Recovered/Resolved]
  - Joint swelling [Not Recovered/Not Resolved]
  - Spinal compression fracture [Recovered/Resolved]
  - Ejection fraction decreased [Recovered/Resolved]
  - Peripheral swelling [Not Recovered/Not Resolved]
  - Constipation [Recovering/Resolving]
  - Swelling face [Recovered/Resolved]
  - Back pain [Not Recovered/Not Resolved]

NARRATIVE: CASE EVENT DATE: 20170122
